FAERS Safety Report 14994124 (Version 1)
Quarter: 2018Q2

REPORT INFORMATION
  Report Type: Spontaneous
  Country: US (occurrence: US)
  Receive Date: 20180611
  Receipt Date: 20180611
  Transmission Date: 20180711
  Serious: Yes (Death, Other)
  Sender: FDA-Public Use
  Company Number: US-BRISTOL-MYERS SQUIBB COMPANY-BMS-2018-053707

PATIENT
  Age: 12 Year
  Sex: Female

DRUGS (8)
  1. NIVOLUMAB [Suspect]
     Active Substance: NIVOLUMAB
     Indication: PINEALOBLASTOMA
     Route: 065
  2. VORINOSTAT [Suspect]
     Active Substance: VORINOSTAT
     Indication: PRODUCT USED FOR UNKNOWN INDICATION
     Route: 065
  3. EVEROLIMUS. [Suspect]
     Active Substance: EVEROLIMUS
     Indication: PRODUCT USED FOR UNKNOWN INDICATION
     Route: 065
  4. CISPLATIN. [Suspect]
     Active Substance: CISPLATIN
     Indication: PINEALOBLASTOMA
     Route: 065
  5. CYCLOPHOSPHAMIDE. [Suspect]
     Active Substance: CYCLOPHOSPHAMIDE
     Indication: PINEALOBLASTOMA
     Route: 065
  6. LOMUSTINE. [Suspect]
     Active Substance: LOMUSTINE
     Indication: PRODUCT USED FOR UNKNOWN INDICATION
     Route: 065
  7. VINCRISTINE [Suspect]
     Active Substance: VINCRISTINE
     Indication: PINEALOBLASTOMA
     Route: 065
  8. TEMODAR [Suspect]
     Active Substance: TEMOZOLOMIDE
     Indication: PRODUCT USED FOR UNKNOWN INDICATION
     Route: 065

REACTIONS (4)
  - Death [Fatal]
  - Malignant neoplasm progression [Unknown]
  - Metastases to bone [Unknown]
  - Product use in unapproved indication [Unknown]
